FAERS Safety Report 5771569-X (Version None)
Quarter: 2008Q2

REPORT INFORMATION
  Report Type: 
  Country: None (occurrence: None)
  Receive Date: 20080612
  Receipt Date: 20080612
  Transmission Date: 20081010
  Serious: Yes (Death)
  Sender: FDA-Public Use
  Company Number: None

PATIENT
  Age: 18 Year
  Sex: Female
  Weight: 50 kg

DRUGS (1)
  1. ACETADOTE [Suspect]
     Indication: OVERDOSE
     Dosage: 120 GRAMS CONTINUOUS INFUSIO IV DRIP
     Route: 041
     Dates: start: 20080510, end: 20080512

REACTIONS (5)
  - BRAIN DEATH [None]
  - BRAIN OEDEMA [None]
  - CONVULSION [None]
  - INAPPROPRIATE DEVICE PROGRAMMING [None]
  - INCORRECT DOSE ADMINISTERED [None]
